FAERS Safety Report 15356345 (Version 2)
Quarter: 2018Q3

REPORT INFORMATION
  Report Type: Spontaneous
  Country: JP (occurrence: JP)
  Receive Date: 20180906
  Receipt Date: 20180917
  Transmission Date: 20181010
  Serious: Yes (Other)
  Sender: FDA-Public Use
  Company Number: JP-JT-EVA201802529KERYXP-001

PATIENT
  Age: 69 Year
  Sex: Male
  Weight: 63 kg

DRUGS (12)
  1. FEBURIC [Concomitant]
     Active Substance: FEBUXOSTAT
     Indication: HYPERURICAEMIA
     Dosage: 10 MG, QD
     Route: 048
     Dates: start: 20171114
  2. INVESTIGATIONAL DRUG [Concomitant]
     Active Substance: INVESTIGATIONAL PRODUCT
     Indication: NEPHROGENIC ANAEMIA
     Dosage: 4 MG, QD
     Route: 048
     Dates: start: 20171128, end: 20180824
  3. AMLODIPINE [Concomitant]
     Active Substance: AMLODIPINE BESYLATE
     Indication: HYPERTENSION
     Dosage: 10 MG, QD
     Route: 048
     Dates: start: 20171114
  4. TALION                             /01587402/ [Concomitant]
     Active Substance: BEPOTASTINE
     Indication: PRURITUS
     Dosage: 10 MG, BID
     Route: 048
     Dates: start: 20171114
  5. AZOPT [Concomitant]
     Active Substance: BRINZOLAMIDE
     Indication: OCULAR HYPERTENSION
     Dosage: 1 DF, QD
     Route: 047
     Dates: start: 20171114
  6. FUROSEMIDE. [Concomitant]
     Active Substance: FUROSEMIDE
     Indication: CARDIAC FAILURE CHRONIC
     Dosage: 40 MG, BID
     Route: 048
     Dates: start: 20171114
  7. HEPAFILLED [Concomitant]
     Indication: THROMBOSIS PROPHYLAXIS
     Dosage: 20 ML, UNK
     Route: 010
     Dates: start: 20171114
  8. TRAZENTA [Concomitant]
     Active Substance: LINAGLIPTIN
     Indication: DIABETES MELLITUS
     Dosage: 5 MG, QD
     Route: 048
     Dates: start: 20171114
  9. CLOPIDOGREL [Concomitant]
     Active Substance: CLOPIDOGREL BISULFATE
     Indication: MYOCARDIAL ISCHAEMIA
     Dosage: 75 MG, QD
     Route: 048
     Dates: start: 20171114
  10. RIONA [Suspect]
     Active Substance: FERRIC CITRATE ANHYDROUS
     Indication: HYPERPHOSPHATAEMIA
     Dosage: 40 MG, TID
     Route: 048
     Dates: start: 20171114
  11. ARTIST [Concomitant]
     Active Substance: CARVEDILOL
     Indication: HYPERTENSION
     Dosage: 20 MG, QD
     Route: 048
     Dates: start: 20171114
  12. CALFINA [Concomitant]
     Active Substance: ALFACALCIDOL
     Indication: CHRONIC KIDNEY DISEASE-MINERAL AND BONE DISORDER
     Dosage: 0.25 MICRO?G, QD
     Route: 048
     Dates: start: 20171114

REACTIONS (1)
  - Gastric cancer [Not Recovered/Not Resolved]

NARRATIVE: CASE EVENT DATE: 20180714
